FAERS Safety Report 10446506 (Version 1)
Quarter: 2014Q3

REPORT INFORMATION
  Report Type: Spontaneous
  Country: GB (occurrence: GB)
  Receive Date: 20140911
  Receipt Date: 20140911
  Transmission Date: 20150326
  Serious: Yes (Other)
  Sender: FDA-Public Use
  Company Number: GB-AUROBINDO-AUR-APL-2014-09529

PATIENT
  Age: 38 Year
  Sex: Male
  Weight: 78 kg

DRUGS (20)
  1. AVAMYS [Concomitant]
     Active Substance: FLUTICASONE FUROATE
     Indication: SEASONAL ALLERGY
     Dosage: 2 DF, ONCE A DAY
     Route: 045
  2. SALBUTAMOL [Concomitant]
     Active Substance: ALBUTEROL
     Indication: ASTHMA
     Dosage: 100 ?G, AS NECESSARY
  3. INTAL [Concomitant]
     Active Substance: CROMOLYN SODIUM
     Indication: ASTHMA
     Dosage: 1 DF, OCULAR , AS NECESSARY
     Route: 050
  4. VENTOLIN [Concomitant]
     Active Substance: ALBUTEROL SULFATE
     Indication: ASTHMA
     Dosage: 2.5 MG, AS NECESSARY
  5. FLUTICASONE [Concomitant]
     Active Substance: FLUTICASONE\FLUTICASONE PROPIONATE
     Indication: ASTHMA
     Dosage: 2 DF, TWO TIMES A DAY
  6. IPRATROPIUM BROMIDE. [Concomitant]
     Active Substance: IPRATROPIUM BROMIDE
     Indication: ASTHMA
     Dosage: 2 DF, TWO TIMES A DAY
  7. LOPERAMIDE [Concomitant]
     Active Substance: LOPERAMIDE
     Indication: IRRITABLE BOWEL SYNDROME
     Dosage: 2 MG, AS NECESSARY
     Route: 048
  8. PARACETAMOL [Concomitant]
     Active Substance: ACETAMINOPHEN
     Indication: MIGRAINE
     Dosage: 500 MG, AS NECESSARY
     Route: 048
  9. ADCAL D3 [Concomitant]
     Active Substance: CALCIUM CARBONATE\CHOLECALCIFEROL
     Indication: OSTEOPOROSIS
     Dosage: 2 DF, ONCE A DAY
     Route: 048
  10. MONTELUKAST [Concomitant]
     Active Substance: MONTELUKAST SODIUM
     Indication: ASTHMA
     Dosage: 10 MG, ONCE A DAY
     Route: 048
  11. CETIRIZINE [Concomitant]
     Active Substance: CETIRIZINE HYDROCHLORIDE
     Indication: SEASONAL ALLERGY
     Dosage: 10 MG, ONCE A DAY
     Route: 048
  12. CLOTRIMAZOLE. [Concomitant]
     Active Substance: CLOTRIMAZOLE
     Indication: ECZEMA
     Dosage: 2 DF, TWO TIMES A DAY
     Route: 061
  13. ESOMEPRAZOLE [Concomitant]
     Active Substance: ESOMEPRAZOLE
     Indication: PRODUCT USED FOR UNKNOWN INDICATION
     Dosage: 20 MG, TWO TIMES A DAY
     Route: 048
  14. ZOLEDRONIC ACID [Concomitant]
     Active Substance: ZOLEDRONIC ACID
     Indication: OSTEOPOROSIS
     Dosage: 1 DF, 1/1 YEARS
     Route: 041
     Dates: start: 20130122
  15. GAVISCON [Concomitant]
     Active Substance: ALUMINUM HYDROXIDE\MAGNESIUM CARBONATE
     Indication: PRODUCT USED FOR UNKNOWN INDICATION
     Dosage: 50 ML, FOUR TIMES/DAY
     Route: 048
  16. DOMPERIDONE [Concomitant]
     Active Substance: DOMPERIDONE
     Indication: PRODUCT USED FOR UNKNOWN INDICATION
     Dosage: 10 MG, 3 TIMES A DAY
     Route: 048
  17. LACTULOSE. [Concomitant]
     Active Substance: LACTULOSE
     Indication: IRRITABLE BOWEL SYNDROME
     Dosage: UNK, AS NECESSARY
     Route: 048
  18. SALMETEROL XINAFOATE [Concomitant]
     Active Substance: SALMETEROL XINAFOATE
     Indication: ASTHMA
     Dosage: 2 DF, TWO TIMES A DAY
  19. TOPIRAMATE 50MG FILM-COATED TABLETS [Suspect]
     Active Substance: TOPIRAMATE
     Indication: MIGRAINE
     Dosage: 50 MG, TWO TIMES A DAY
     Route: 048
     Dates: start: 201307, end: 201405
  20. MEBEVERINE [Concomitant]
     Active Substance: MEBEVERINE
     Indication: IRRITABLE BOWEL SYNDROME
     Dosage: 135 MG, 3 TIMES A DAY
     Route: 048

REACTIONS (6)
  - Pain [Recovered/Resolved]
  - Blister [Recovered/Resolved]
  - Paraesthesia [Not Recovered/Not Resolved]
  - Wound secretion [Recovered/Resolved]
  - Blister rupture [Recovered/Resolved]
  - Hypoaesthesia [Not Recovered/Not Resolved]
